FAERS Safety Report 7585478-7 (Version None)
Quarter: 2011Q3

REPORT INFORMATION
  Report Type: 
  Country: None (occurrence: None)
  Receive Date: 20110701
  Receipt Date: 20110621
  Transmission Date: 20111222
  Serious: Yes (Hospitalization, Other)
  Sender: FDA-Public Use
  Company Number: US-BAYER-201020929NA

PATIENT
  Age: 37 Year
  Sex: Female
  Weight: 99.773 kg

DRUGS (9)
  1. YAZ [Suspect]
     Indication: PREMENSTRUAL SYNDROME
     Dosage: UNK UNK, QD
     Route: 048
     Dates: start: 20070831, end: 20071002
  2. ADVIL LIQUI-GELS [Concomitant]
  3. PHENTERMINE [Concomitant]
     Indication: WEIGHT DECREASED
     Dosage: UNK
     Dates: start: 20070201, end: 20070601
  4. HERBAL PREPARATION [Concomitant]
     Dosage: UNK
     Dates: start: 20070601, end: 20071001
  5. UNCODEABLE ^UNCLASSIFIABLE^ [Concomitant]
     Indication: DYSPEPSIA
     Dosage: UNK
     Dates: start: 20071001
  6. DIETARY SUPPLEMENTS [Concomitant]
     Dosage: UNK
     Dates: start: 20070601, end: 20071001
  7. ASCORBIC ACID [Concomitant]
  8. IBUPROFEN [Concomitant]
  9. YAZ [Suspect]

REACTIONS (6)
  - PELVIC VENOUS THROMBOSIS [None]
  - CHEST PAIN [None]
  - NAUSEA [None]
  - PULMONARY EMBOLISM [None]
  - CHEST DISCOMFORT [None]
  - DYSPNOEA [None]
